FAERS Safety Report 23206692 (Version 1)
Quarter: 2023Q4

REPORT INFORMATION
  Report Type: Spontaneous
  Country: PL (occurrence: PL)
  Receive Date: 20231120
  Receipt Date: 20231120
  Transmission Date: 20240110
  Serious: Yes (Other)
  Sender: FDA-Public Use
  Company Number: PL-ROCHE-3386412

PATIENT
  Sex: Male

DRUGS (9)
  1. BENDAMUSTINE [Suspect]
     Active Substance: BENDAMUSTINE
     Indication: Diffuse large B-cell lymphoma
     Dosage: EXTENSION OF POLA-BR CHEMOTHERAPY OVER A PERIOD OF AUG-NOV/2022, A TOTAL OF 6 CYCLES.
     Route: 065
     Dates: start: 20220722
  2. CYCLOPHOSPHAMIDE [Suspect]
     Active Substance: CYCLOPHOSPHAMIDE
     Indication: Diffuse large B-cell lymphoma
     Dosage: 1ST CYCLE ADMINISTERED ON 08-09/APR/2021
     Route: 065
  3. DOXORUBICIN [Suspect]
     Active Substance: DOXORUBICIN
     Indication: Diffuse large B-cell lymphoma
     Dosage: 1ST CYCLE ADMINISTERED ON 08-09/APR/2021
     Route: 065
  4. PREDNISONE [Suspect]
     Active Substance: PREDNISONE
     Indication: Diffuse large B-cell lymphoma
     Dosage: 1ST CYCLE ADMINISTERED ON 08-09/APR/2021
     Route: 065
  5. POLIVY [Suspect]
     Active Substance: POLATUZUMAB VEDOTIN-PIIQ
     Indication: Diffuse large B-cell lymphoma
     Dosage: EXTENSION OF POLA-BR CHEMOTHERAPY OVER A PERIOD OF AUG-NOV/2022, A TOTAL OF 6 CYCLES.
     Route: 065
     Dates: start: 20220722
  6. RITUXIMAB [Suspect]
     Active Substance: RITUXIMAB
     Dosage: 1ST CYCLE OF RITUXIMAB WAS ADMINISTERED ON 08-09/APR/2021
     Route: 065
  7. RITUXIMAB [Suspect]
     Active Substance: RITUXIMAB
     Dosage: EXTENSION OF POLA-BR CHEMOTHERAPY OVER A PERIOD OF AUG-NOV/2022, A TOTAL OF 6 CYCLES.
     Route: 065
     Dates: start: 20220722
  8. RITUXIMAB [Suspect]
     Active Substance: RITUXIMAB
     Indication: Diffuse large B-cell lymphoma
     Dosage: UNK
     Route: 065
     Dates: start: 20210507
  9. VINCRISTINE [Suspect]
     Active Substance: VINCRISTINE
     Indication: Diffuse large B-cell lymphoma
     Dosage: 1ST CYCLE ADMINISTERED ON 08-09/APR/2021
     Route: 065

REACTIONS (11)
  - Neutropenia [Unknown]
  - Arrhythmia [Unknown]
  - Atrial fibrillation [Unknown]
  - Gastric ulcer haemorrhage [Unknown]
  - Pneumothorax [Unknown]
  - Urinary tract infection [Unknown]
  - Transaminases increased [Unknown]
  - Hypogammaglobulinaemia [Unknown]
  - COVID-19 [Unknown]
  - Inflammation [Unknown]
  - Upper respiratory tract infection [Unknown]
